FAERS Safety Report 22383385 (Version 4)
Quarter: 2024Q1

REPORT INFORMATION
  Report Type: Spontaneous
  Country: US (occurrence: US)
  Receive Date: 20230530
  Receipt Date: 20240129
  Transmission Date: 20240410
  Serious: Yes (Disabling, Other)
  Sender: FDA-Public Use
  Company Number: US-MIRATI-MT2023PM04025

PATIENT
  Sex: Female
  Weight: 99.773 kg

DRUGS (32)
  1. KRAZATI [Suspect]
     Active Substance: ADAGRASIB
     Indication: Lung neoplasm malignant
     Dosage: 600 MG, QD
     Route: 048
     Dates: start: 20230410
  2. KRAZATI [Suspect]
     Active Substance: ADAGRASIB
     Indication: Non-small cell lung cancer
     Dosage: 600 MG, BID
     Route: 048
     Dates: start: 202304, end: 202305
  3. KRAZATI [Suspect]
     Active Substance: ADAGRASIB
     Dosage: 400 MG, QD
     Route: 048
     Dates: start: 202308
  4. KRAZATI [Suspect]
     Active Substance: ADAGRASIB
     Dosage: 600 MG, QD
     Route: 048
     Dates: start: 20230831, end: 20240118
  5. ASPIRIN [Concomitant]
     Active Substance: ASPIRIN
  6. ATENOLOL [Concomitant]
     Active Substance: ATENOLOL
  7. BACTRIM DS [Concomitant]
     Active Substance: SULFAMETHOXAZOLE\TRIMETHOPRIM
  8. BENZONATATE [Concomitant]
     Active Substance: BENZONATATE
  9. CETIRIZINE [Concomitant]
     Active Substance: CETIRIZINE HYDROCHLORIDE
  10. CLARINEX [Concomitant]
     Active Substance: DESLORATADINE
  11. CLONAZEPAM [Concomitant]
     Active Substance: CLONAZEPAM
  12. LACTOBACILLUS ACIDOPHILUS [Concomitant]
     Active Substance: LACTOBACILLUS ACIDOPHILUS
  13. FOLIC ACID [Concomitant]
     Active Substance: FOLIC ACID
  14. GABAPENTIN [Concomitant]
     Active Substance: GABAPENTIN
  15. IBUPROFEN [Concomitant]
     Active Substance: IBUPROFEN
  16. IPRATROPIUM BROMIDE [Concomitant]
     Active Substance: IPRATROPIUM BROMIDE\IPRATROPIUM BROMIDE ANHYDROUS
     Route: 045
  17. LANSOPRAZOLE [Concomitant]
     Active Substance: LANSOPRAZOLE
  18. LATANOPROST [Concomitant]
     Active Substance: LATANOPROST
     Route: 047
  19. LOPERAMIDE [Concomitant]
     Active Substance: LOPERAMIDE
  20. MECLIZINE [Concomitant]
     Active Substance: MECLIZINE HYDROCHLORIDE
  21. METAMUCIL [Concomitant]
     Active Substance: PLANTAGO SEED
  22. OLOPATADINE HYDROCHLORIDE [Concomitant]
     Active Substance: OLOPATADINE HYDROCHLORIDE
     Route: 045
  23. PREDNISONE [Concomitant]
     Active Substance: PREDNISONE
  24. TUDORZA PRESSAIR [Concomitant]
     Active Substance: ACLIDINIUM BROMIDE
  25. TUMS [Concomitant]
     Active Substance: CALCIUM CARBONATE
  26. TYLENOL [Concomitant]
     Active Substance: ACETAMINOPHEN
  27. VENTOLIN [Concomitant]
     Active Substance: ALBUTEROL SULFATE
  28. VITAMIN D3 [Concomitant]
     Active Substance: CHOLECALCIFEROL
  29. ALBUTEROL SULFATE [Concomitant]
     Active Substance: ALBUTEROL SULFATE
  30. PROBIOTICS NOS [Concomitant]
     Active Substance: PROBIOTICS NOS
     Indication: Gastrointestinal disorder prophylaxis
  31. MYCELEX TROCHE [Concomitant]
     Route: 048
  32. CLOTRIMAZOLE [Concomitant]
     Active Substance: CLOTRIMAZOLE

REACTIONS (5)
  - Visual impairment [Not Recovered/Not Resolved]
  - Oedema peripheral [Not Recovered/Not Resolved]
  - Pain [Not Recovered/Not Resolved]
  - Oedema [Recovering/Resolving]
  - Hepatic function abnormal [Recovering/Resolving]

NARRATIVE: CASE EVENT DATE: 20230519
